FAERS Safety Report 4879533-X (Version None)
Quarter: 2006Q1

REPORT INFORMATION
  Report Type: 
  Country: None (occurrence: None)
  Receive Date: 20060111
  Receipt Date: 20051229
  Transmission Date: 20060701
  Serious: Yes (Hospitalization, Other)
  Sender: FDA-Public Use
  Company Number: GBWYE268729DEC05

PATIENT
  Age: 60 Year
  Sex: Male

DRUGS (3)
  1. ANADIN IBUPROFEN (IBUPROFEN, TABLET, 0) [Suspect]
     Dosage: OVERDOSE OF 20 X 400MG TABLETS;
  2. GLIBENCLAMIDE (GLIBENCLAMIDE, , 0) [Suspect]
     Dosage: OVERDOSE OF 20 DOSES X 5MG ONCE;
  3. METFORMIN [Suspect]
     Dosage: OVERDOSE OF 100 X 500MG TABLETS;

REACTIONS (17)
  - ABDOMINAL PAIN [None]
  - AGITATION [None]
  - ANURIA [None]
  - APNOEA [None]
  - BACK PAIN [None]
  - BLOOD SODIUM INCREASED [None]
  - BODY TEMPERATURE DECREASED [None]
  - HAEMODIALYSIS [None]
  - LACTIC ACIDOSIS [None]
  - MEAN ARTERIAL PRESSURE INCREASED [None]
  - METABOLIC ACIDOSIS [None]
  - MULTIPLE DRUG OVERDOSE [None]
  - POLYURIA [None]
  - SOMNOLENCE [None]
  - TACHYPNOEA [None]
  - VENTRICULAR FIBRILLATION [None]
  - VOMITING [None]
